FAERS Safety Report 24357236 (Version 2)
Quarter: 2025Q1

REPORT INFORMATION
  Report Type: Spontaneous
  Country: JP (occurrence: JP)
  Receive Date: 20240924
  Receipt Date: 20250206
  Transmission Date: 20250409
  Serious: Yes (Hospitalization)
  Sender: UCB
  Company Number: JP-UCBJ-CD202408712UCBPHAPROD

PATIENT

DRUGS (1)
  1. CIMZIA [Suspect]
     Active Substance: CERTOLIZUMAB PEGOL
     Indication: Rheumatoid arthritis
     Route: 058

REACTIONS (1)
  - Fracture [Unknown]
